FAERS Safety Report 4296326-5 (Version None)
Quarter: 2004Q1

REPORT INFORMATION
  Report Type: 
  Country: None (occurrence: None)
  Receive Date: 20040213
  Receipt Date: 20040213
  Transmission Date: 20041129
  Serious: Yes (Hospitalization)
  Sender: FDA-Public Use
  Company Number: None

PATIENT
  Sex: Male
  Weight: 54.4316 kg

DRUGS (5)
  1. DIGITEK [Suspect]
     Indication: CARDIAC DISORDER
     Dosage: PO
     Route: 048
  2. ATENOLOL [Concomitant]
  3. LIPITOR [Concomitant]
  4. ADVAIR DISKUS 100/50 [Concomitant]
  5. ASTELIN [Concomitant]

REACTIONS (6)
  - CHROMATOPSIA [None]
  - COMA [None]
  - DRUG LEVEL INCREASED [None]
  - NAUSEA [None]
  - VISUAL DISTURBANCE [None]
  - VOMITING [None]
